FAERS Safety Report 8887008 (Version 1)
Quarter: 2012Q4

REPORT INFORMATION
  Report Type: 
  Country: US (occurrence: US)
  Receive Date: 20121105
  Receipt Date: 20121105
  Transmission Date: 20130627
  Serious: Yes (Other)
  Sender: FDA-Public Use
  Company Number: US-BRISTOL-MYERS SQUIBB COMPANY-17073586

PATIENT
  Age: 60 Year
  Sex: Male

DRUGS (1)
  1. ORENCIA [Suspect]

REACTIONS (4)
  - Aphasia [Unknown]
  - Aspiration [Unknown]
  - Dysphonia [Unknown]
  - Weight decreased [Unknown]
